FAERS Safety Report 4388464-3 (Version None)
Quarter: 2004Q2

REPORT INFORMATION
  Report Type: 
  Country: None (occurrence: None)
  Receive Date: 20040624
  Receipt Date: 20040609
  Transmission Date: 20050107
  Serious: Yes (Hospitalization)
  Sender: FDA-Public Use
  Company Number: GBR-2004-0001136

PATIENT
  Age: 61 Year
  Sex: Male

DRUGS (14)
  1. MORPHINE SULFATE [Suspect]
     Indication: PAIN
     Dosage: ORAL
     Route: 048
     Dates: start: 20040525
  2. MORPHINE SULFATE [Suspect]
     Indication: PAIN
     Dosage: ORAL
     Route: 048
     Dates: start: 20040525
  3. DIGOXIN [Concomitant]
  4. PREVISCAN (FLUINDIONE) [Concomitant]
  5. OMEPRAZOLE [Concomitant]
  6. CARVEDILOL [Concomitant]
  7. ALDACTAZIDE [Concomitant]
  8. BURINEX (BUMETANIDE)I [Concomitant]
  9. FOLIC ACID [Concomitant]
  10. COVERSYL (PERINDOPRIL) [Concomitant]
  11. ERYTHROPOIETIN (ERYTHROPOIETIN) [Concomitant]
  12. COD EFFERALGAN [Concomitant]
  13. CODOLIPRANE [Concomitant]
  14. DI-ANTALVIC (DEXTROPROPOXYPHENE HYDROCHLORIDE) [Concomitant]

REACTIONS (6)
  - CONDITION AGGRAVATED [None]
  - CONSTIPATION [None]
  - OVERDOSE [None]
  - RENAL FAILURE [None]
  - SOMNOLENCE [None]
  - VOMITING [None]
